FAERS Safety Report 7064902-2 (Version None)
Quarter: 2010Q4

REPORT INFORMATION
  Report Type: 
  Country: None (occurrence: None)
  Receive Date: 20101019
  Receipt Date: 20101015
  Transmission Date: 20110411
  Serious: Yes (Death, Hospitalization)
  Sender: FDA-Public Use
  Company Number: 2010SP053866

PATIENT
  Age: 73 Year
  Sex: Female

DRUGS (9)
  1. TEMODAL [Suspect]
     Indication: GLIOBLASTOMA MULTIFORME
     Dosage: 120 MG;QD;PO
     Route: 048
     Dates: start: 20100524, end: 20100713
  2. NIFEDIPINE [Concomitant]
  3. BISOPROLOL FUMARATE [Concomitant]
  4. RAMIPRIL [Concomitant]
  5. DOXAZOSIN MESYLATE [Concomitant]
  6. METFORMIN [Concomitant]
  7. GLIBENCLAMIDE [Concomitant]
  8. INSULIN [Concomitant]
  9. LEVETIRACETAM [Concomitant]

REACTIONS (9)
  - ANAEMIA [None]
  - BONE MARROW FAILURE [None]
  - ESCHERICHIA INFECTION [None]
  - GENERAL PHYSICAL HEALTH DETERIORATION [None]
  - HAEMATOTOXICITY [None]
  - MOUTH HAEMORRHAGE [None]
  - PANCYTOPENIA [None]
  - PNEUMONIA [None]
  - SEPSIS [None]
